FAERS Safety Report 11992156 (Version 1)
Quarter: 2016Q1

REPORT INFORMATION
  Report Type: Spontaneous
  Country: US (occurrence: US)
  Receive Date: 20160203
  Receipt Date: 20160203
  Transmission Date: 20160526
  Serious: No
  Sender: FDA-Public Use
  Company Number: US-JNJFOC-20151215225

PATIENT
  Age: 87 Year
  Sex: Female
  Weight: 61.24 kg

DRUGS (1)
  1. TYLENOL EXTRA STRENGTH [Suspect]
     Active Substance: ACETAMINOPHEN
     Indication: PAIN
     Dosage: 1 CAPLET 3XDAY THEN WEENED DOWN TO 2 CAPLET 2XDAY THEN 1 A DAY
     Route: 048
     Dates: start: 20151129, end: 20151215

REACTIONS (2)
  - Inappropriate schedule of drug administration [Unknown]
  - Underdose [Unknown]
